FAERS Safety Report 6711488-5 (Version None)
Quarter: 2010Q2

REPORT INFORMATION
  Report Type: 
  Country: None (occurrence: None)
  Receive Date: 20100505
  Receipt Date: 20100426
  Transmission Date: 20101027
  Serious: Yes (Hospitalization)
  Sender: FDA-Public Use
  Company Number: DE-NAPPMUNDI-DEU-2010-0006189

PATIENT
  Age: 78 Year
  Sex: Female

DRUGS (14)
  1. SEVREDOL 20 MG [Suspect]
     Indication: CANCER PAIN
     Dosage: 20 MG, QID
     Route: 048
     Dates: start: 20100301
  2. FENTANYL CITRATE [Suspect]
     Indication: CANCER PAIN
     Dosage: 125 MCG, Q1H
     Route: 062
     Dates: start: 20100208, end: 20100323
  3. FENTANYL CITRATE [Suspect]
     Dosage: 125 MCG, Q1H
     Route: 062
     Dates: start: 20100327
  4. NEURONTIN [Concomitant]
     Indication: PAIN
     Dosage: 300 MG, TID
     Route: 048
     Dates: start: 20100312
  5. TORSEMIDE [Concomitant]
     Indication: HYPERTENSION
     Dosage: 5 MG, BID
     Route: 048
     Dates: start: 20000101
  6. BISOPROLOL FUMARATE [Concomitant]
  7. RAMIPRIL [Concomitant]
  8. PANTOZOL                           /01263202/ [Concomitant]
  9. MOXONIDINE [Concomitant]
  10. L-THYROX [Concomitant]
  11. HUMALOG [Concomitant]
  12. LANTUS [Concomitant]
  13. NOVAMINSULFON [Concomitant]
  14. CLEXANE [Concomitant]

REACTIONS (2)
  - RENAL FAILURE ACUTE [None]
  - RESPIRATORY DEPRESSION [None]
